FAERS Safety Report 4803917-9 (Version None)
Quarter: 2005Q3

REPORT INFORMATION
  Report Type: 
  Country: None (occurrence: None)
  Receive Date: 20050920
  Receipt Date: 20050601
  Transmission Date: 20060218
  Serious: No
  Sender: FDA-Public Use
  Company Number: US-YAMANOUCHI-YPA20050290

PATIENT
  Sex: Male
  Weight: 71.6683 kg

DRUGS (5)
  1. VESICARE [Suspect]
     Indication: HYPERTONIC BLADDER
     Dosage: 5 MG QD PO
     Route: 048
     Dates: start: 20050525
  2. TRICOR [Concomitant]
  3. WELCHOL [Concomitant]
  4. CELEBREX [Concomitant]
  5. VITAMINS [Concomitant]

REACTIONS (1)
  - MUSCLE SPASMS [None]
